FAERS Safety Report 12538346 (Version 1)
Quarter: 2016Q3

REPORT INFORMATION
  Report Type: Spontaneous
  Country: FR (occurrence: FR)
  Receive Date: 20160707
  Receipt Date: 20160707
  Transmission Date: 20161109
  Serious: Yes (Hospitalization)
  Sender: FDA-Public Use
  Company Number: FR-009507513-1607FRA000464

PATIENT
  Age: 79 Year
  Sex: Male

DRUGS (9)
  1. PROPRANOLOL HYDROCHLORIDE. [Concomitant]
     Active Substance: PROPRANOLOL HYDROCHLORIDE
     Dosage: LONG ACTING, 1 IN THE MORNING
     Route: 048
  2. LERCAN [Concomitant]
     Active Substance: LERCANIDIPINE
     Dosage: 1 IN THE EVENING
  3. ARICEPT [Concomitant]
     Active Substance: DONEPEZIL HYDROCHLORIDE
     Dosage: 1 IN THE EVENING
  4. CHIBRO-PROSCAR [Concomitant]
     Active Substance: FINASTERIDE
     Dosage: 1 IN THE EVENING
     Route: 048
  5. PREVISCAN [Suspect]
     Active Substance: FLUINDIONE
     Dosage: 1 IN THE EVENING EXCEPT ON WEDNESDAY, SATURDAY AND SUNDAY
     Route: 048
     Dates: end: 20160527
  6. ZOCOR [Suspect]
     Active Substance: SIMVASTATIN
     Dosage: 0.5 DF, QD
     Route: 048
  7. INIPOMP [Concomitant]
     Active Substance: PANTOPRAZOLE SODIUM
     Dosage: 1 IN THE MORNING
  8. PREVISCAN [Suspect]
     Active Substance: FLUINDIONE
     Dosage: 0.75 TABLET IN THE EVENING ON WEDNESDAY, SATURDAY AND SUNDAY
  9. DEBRIDAT [Concomitant]
     Active Substance: TRIMEBUTINE MALEATE
     Dosage: 1 DF, TID

REACTIONS (1)
  - Basal ganglia haematoma [Recovering/Resolving]

NARRATIVE: CASE EVENT DATE: 20160527
